FAERS Safety Report 12977114 (Version 1)
Quarter: 2016Q4

REPORT INFORMATION
  Report Type: Report from Study
  Country: None (occurrence: US)
  Receive Date: 20161128
  Receipt Date: 20161128
  Transmission Date: 20170207
  Serious: Yes (Hospitalization, Other)
  Sender: FDA-Public Use
  Company Number: US-ABBVIE-16K-163-1787801-00

PATIENT
  Age: 63 Year
  Sex: Male
  Weight: 101.7 kg

DRUGS (1)
  1. HUMIRA [Suspect]
     Active Substance: ADALIMUMAB
     Indication: RHEUMATOID ARTHRITIS
     Route: 058
     Dates: start: 2009, end: 20161006

REACTIONS (6)
  - Exostosis [Recovering/Resolving]
  - Coronary artery occlusion [Recovering/Resolving]
  - Procedural complication [Unknown]
  - Intervertebral disc protrusion [Recovering/Resolving]
  - Myocardial infarction [Unknown]
  - Osteomalacia [Unknown]

NARRATIVE: CASE EVENT DATE: 201610
